FAERS Safety Report 10149893 (Version 2)
Quarter: 2014Q2

REPORT INFORMATION
  Report Type: Report from Study
  Country: US (occurrence: CA)
  Receive Date: 20140502
  Receipt Date: 20140509
  Transmission Date: 20141212
  Serious: Yes (Hospitalization)
  Sender: FDA-Public Use
  Company Number: CA-TEVA-478567USA

PATIENT
  Age: 1 Year
  Sex: Male
  Weight: 10.3 kg

DRUGS (8)
  1. LESTAURTINIB [Suspect]
     Dates: start: 20131112
  2. CYCLOPHOSPHAMIDE [Suspect]
     Dates: start: 20131112
  3. CYTARABINE [Suspect]
     Route: 037
     Dates: start: 20131112
  4. ETOPOSIDE [Suspect]
     Dates: start: 20131112
  5. HYDROCORTISONE [Suspect]
     Indication: ACUTE LYMPHOCYTIC LEUKAEMIA
     Route: 037
     Dates: start: 20131112
  6. FOLINIC ACID [Suspect]
     Indication: ACUTE LYMPHOCYTIC LEUKAEMIA
     Dates: start: 20131112
  7. METHOTREXATE [Suspect]
     Indication: ACUTE LYMPHOCYTIC LEUKAEMIA
     Dates: start: 20131112
  8. PEG-ASPARAGINASE [Suspect]
     Indication: ACUTE LYMPHOCYTIC LEUKAEMIA

REACTIONS (2)
  - Escherichia infection [Recovering/Resolving]
  - Febrile neutropenia [Recovering/Resolving]
